FAERS Safety Report 20333260 (Version 5)
Quarter: 2022Q3

REPORT INFORMATION
  Report Type: Report from Study
  Country: US (occurrence: US)
  Receive Date: 20220113
  Receipt Date: 20220705
  Transmission Date: 20221026
  Serious: No
  Sender: FDA-Public Use
  Company Number: US-NOVARTISTESTPH-NVSC2022US006014

PATIENT
  Sex: Female

DRUGS (1)
  1. COSENTYX [Suspect]
     Active Substance: SECUKINUMAB
     Indication: Product used for unknown indication
     Dosage: 300 MG
     Route: 058

REACTIONS (8)
  - COVID-19 [Unknown]
  - Abscess [Unknown]
  - Pruritus [Unknown]
  - Heavy menstrual bleeding [Unknown]
  - Psoriasis [Unknown]
  - Menstruation irregular [Unknown]
  - Blister [Recovering/Resolving]
  - Skin exfoliation [Recovering/Resolving]
